FAERS Safety Report 18608019 (Version 1)
Quarter: 2020Q4

REPORT INFORMATION
  Report Type: Spontaneous
  Country: US (occurrence: US)
  Receive Date: 20201212
  Receipt Date: 20201212
  Transmission Date: 20210114
  Serious: No
  Sender: FDA-Public Use
  Company Number: US-GLAXOSMITHKLINE-US2020238723

PATIENT
  Sex: Female

DRUGS (2)
  1. ANORO ELLIPTA [Suspect]
     Active Substance: UMECLIDINIUM BROMIDE\VILANTEROL TRIFENATATE
     Indication: CHRONIC OBSTRUCTIVE PULMONARY DISEASE
     Dosage: UNK
  2. TRELEGY ELLIPTA [Suspect]
     Active Substance: FLUTICASONE FUROATE\UMECLIDINIUM BROMIDE\VILANTEROL TRIFENATATE
     Indication: CHRONIC OBSTRUCTIVE PULMONARY DISEASE
     Dosage: UNK
     Dates: start: 2019

REACTIONS (10)
  - Urinary incontinence [Unknown]
  - Fungal infection [Unknown]
  - Musculoskeletal chest pain [Recovered/Resolved]
  - Urine flow decreased [Recovered/Resolved]
  - Costochondritis [Unknown]
  - Drug ineffective [Unknown]
  - Anal pruritus [Unknown]
  - Pollakiuria [Recovered/Resolved]
  - Mass [Unknown]
  - Expired product administered [Unknown]
